FAERS Safety Report 9968490 (Version 1)
Quarter: 2014Q1

REPORT INFORMATION
  Report Type: Report from Study
  Country: US (occurrence: US)
  Receive Date: 20140306
  Receipt Date: 20140306
  Transmission Date: 20141002
  Serious: No
  Sender: FDA-Public Use
  Company Number: US-ABBVIE-13P-163-1145564-00

PATIENT
  Sex: Female

DRUGS (20)
  1. HUMIRA [Suspect]
     Indication: RHEUMATOID ARTHRITIS
     Route: 058
     Dates: start: 2009, end: 2010
  2. METHOTREXATE [Concomitant]
     Indication: PRODUCT USED FOR UNKNOWN INDICATION
  3. SYMBICORT [Concomitant]
     Indication: ASTHMA
  4. RHINOCORT AQUA [Concomitant]
     Indication: PRODUCT USED FOR UNKNOWN INDICATION
  5. ALBUTEROL [Concomitant]
     Indication: ASTHMA
     Dosage: AS NEEDED
  6. METOPROLOL [Concomitant]
     Indication: PALPITATIONS
  7. LEVOTHYROXINE [Concomitant]
     Indication: HYPOTHYROIDISM
  8. CRESTOR [Concomitant]
     Indication: HYPERCHOLESTEROLAEMIA
  9. ASPIRIN [Concomitant]
     Indication: PRODUCT USED FOR UNKNOWN INDICATION
  10. NEXIUM [Concomitant]
     Indication: GASTROOESOPHAGEAL REFLUX DISEASE
  11. ALLEGRA [Concomitant]
     Indication: HYPERSENSITIVITY
  12. PREDNISONE [Concomitant]
     Indication: RHEUMATOID ARTHRITIS
  13. LOVAZA [Concomitant]
     Indication: HYPERCHOLESTEROLAEMIA
  14. LISINOPRIL [Concomitant]
     Indication: HYPERTENSION
  15. SINGULAR [Concomitant]
     Indication: ASTHMA
  16. GLUCOSAMINE CHONDROITIN [Concomitant]
     Indication: SUPPLEMENTATION THERAPY
  17. CITRACAL + D [Concomitant]
     Indication: MINERAL SUPPLEMENTATION
  18. CENTRUM SILVER [Concomitant]
     Indication: MINERAL SUPPLEMENTATION
  19. VITAMIN E [Concomitant]
     Indication: SUPPLEMENTATION THERAPY
  20. FOLIC ACID [Concomitant]
     Indication: DRUG TOXICITY PROPHYLAXIS

REACTIONS (2)
  - Joint swelling [Not Recovered/Not Resolved]
  - Pain in extremity [Not Recovered/Not Resolved]
